FAERS Safety Report 23275501 (Version 1)
Quarter: 2023Q4

REPORT INFORMATION
  Report Type: Spontaneous
  Country: BR (occurrence: BR)
  Receive Date: 20231208
  Receipt Date: 20231208
  Transmission Date: 20240110
  Serious: Yes (Other)
  Sender: FDA-Public Use
  Company Number: BR-MYLANLABS-2023M1120879

PATIENT

DRUGS (1)
  1. ELIDEL [Suspect]
     Active Substance: PIMECROLIMUS
     Indication: Hypersensitivity
     Route: 065

REACTIONS (4)
  - Hyperaesthesia [Unknown]
  - Pruritus [Unknown]
  - Hypersensitivity [Unknown]
  - Application site pain [Unknown]
